FAERS Safety Report 4940082-1 (Version None)
Quarter: 2006Q1

REPORT INFORMATION
  Report Type: 
  Country: None (occurrence: None)
  Receive Date: 20060310
  Receipt Date: 20060228
  Transmission Date: 20060701
  Serious: Yes (Other)
  Sender: FDA-Public Use
  Company Number: AU-ROCHE-438420

PATIENT
  Age: 22 Year
  Sex: Female

DRUGS (10)
  1. CEFTRIAXONE SODIUM [Suspect]
     Indication: DRUG USE FOR UNKNOWN INDICATION
     Route: 042
  2. CYCLOSPORINE [Concomitant]
  3. URSODEOXYCHOLIC ACID [Concomitant]
  4. PREDNISOLONE [Concomitant]
  5. ZANTAC [Concomitant]
  6. LEXAPRO [Concomitant]
  7. MYCOPHENOLATE MOFETIL [Concomitant]
  8. MIDAZOLAM HCL [Concomitant]
  9. PETHIDINE HYDROCHLORIDE [Concomitant]
  10. AMPICILLIN SODIUM [Concomitant]

REACTIONS (8)
  - ANAPHYLACTIC REACTION [None]
  - CONFUSIONAL STATE [None]
  - COUGH [None]
  - FLUSHING [None]
  - HYPOTENSION [None]
  - RETCHING [None]
  - TACHYCARDIA [None]
  - VOMITING [None]
